FAERS Safety Report 13100874 (Version 2)
Quarter: 2017Q1

REPORT INFORMATION
  Report Type: Spontaneous
  Country: US (occurrence: US)
  Receive Date: 20170110
  Receipt Date: 20170203
  Transmission Date: 20170428
  Serious: Yes (Hospitalization)
  Sender: FDA-Public Use
  Company Number: US-VERTEX PHARMACEUTICALS-2017-000051

PATIENT
  Sex: Female
  Weight: 52 kg

DRUGS (20)
  1. ORKAMBI [Suspect]
     Active Substance: IVACAFTOR\LUMACAFTOR
     Indication: CYSTIC FIBROSIS
     Dosage: 2 DF, 200-125MG, BID
     Route: 048
     Dates: start: 201507
  2. FLORAJEN 3 [Concomitant]
     Active Substance: PROBIOTICS NOS
     Dosage: 1 DF, QD
     Route: 048
  3. SODIUM CHLORIDE. [Concomitant]
     Active Substance: SODIUM CHLORIDE
     Dosage: 4 ML, BID
     Route: 055
  4. DULERA [Concomitant]
     Active Substance: FORMOTEROL FUMARATE DIHYDRATE\MOMETASONE FUROATE
     Dosage: 2 PUFFS ORALLY, BID
  5. CREON [Concomitant]
     Active Substance: PANCRELIPASE AMYLASE\PANCRELIPASE LIPASE\PANCRELIPASE PROTEASE
     Indication: CYSTIC FIBROSIS
     Dosage: 5 CAPSULES WITH MEALS AND 3 WITH SNACKS
     Route: 048
  6. CAYSTON [Concomitant]
     Active Substance: AZTREONAM
     Dosage: 1 VIAL, TID
     Route: 055
  7. PROAIR HFA [Concomitant]
     Active Substance: ALBUTEROL SULFATE
  8. MOBIC [Concomitant]
     Active Substance: MELOXICAM
     Dosage: 2 DF, QD
     Route: 048
     Dates: start: 2013
  9. AZITHROMYCIN ANHYDROUS. [Concomitant]
     Active Substance: AZITHROMYCIN ANHYDROUS
     Dosage: 500MG MON, WED, FRI
     Route: 048
  10. XOLAIR [Concomitant]
     Active Substance: OMALIZUMAB
     Dosage: INJECTED EVERY 14 DAYS
     Dates: start: 2012
  11. EXCEDRIN [Concomitant]
     Active Substance: ACETAMINOPHEN\ASPIRIN\CAFFEINE
     Dosage: 2 DF, QID, PRN
     Route: 048
     Dates: start: 2014
  12. ALBUTEROL HFA [Concomitant]
     Active Substance: ALBUTEROL SULFATE
     Dosage: 3 PUFFS, TID
     Route: 048
  13. VITAMIN D3 [Concomitant]
     Active Substance: CHOLECALCIFEROL
     Dosage: 1 DF, BID
     Route: 048
  14. FLONASE [Concomitant]
     Active Substance: FLUTICASONE PROPIONATE
     Dosage: 2 SPRAYS INTO EACH NOSTRIL, BID
     Route: 045
  15. AQUADEKS [Concomitant]
     Active Substance: MINERALS\VITAMINS
  16. PREVACID [Concomitant]
     Active Substance: LANSOPRAZOLE
     Dosage: 1 DF, BID
     Route: 048
  17. VITAMINS [Concomitant]
     Active Substance: VITAMINS
  18. PULMOZYME [Concomitant]
     Active Substance: DORNASE ALFA
     Dosage: 5MG VIA NEBULIZER, BID
     Route: 055
  19. EPIPEN [Concomitant]
     Active Substance: EPINEPHRINE
     Indication: HYPERSENSITIVITY
     Dosage: 1 DOSE, PRN AS DIRECTED
     Route: 030
  20. SENOKOT [Concomitant]
     Active Substance: SENNOSIDES
     Dosage: 1 DF, QD
     Route: 048

REACTIONS (3)
  - Staphylococcal infection [Not Recovered/Not Resolved]
  - Infective pulmonary exacerbation of cystic fibrosis [Unknown]
  - Depression [Unknown]

NARRATIVE: CASE EVENT DATE: 2015
